FAERS Safety Report 7631704 (Version 4)
Quarter: 2014Q1

REPORT INFORMATION
  Report Type: Spontaneous
  Country: US (occurrence: US)
  Receive Date: 20101018
  Receipt Date: 20140110
  Transmission Date: 20141002
  Serious: Yes (Hospitalization)
  Sender: FDA-Public Use
  Company Number: US-BAYER-201036780NA

PATIENT
  Age: 22 Year
  Sex: Female
  Weight: 86.17 kg

DRUGS (3)
  1. YAZ [Suspect]
     Dosage: UNK UNK, UNK
     Route: 048
     Dates: start: 200609, end: 200910
  2. FIORICET [Concomitant]
  3. MIRENA [Concomitant]

REACTIONS (2)
  - Gallbladder disorder [Unknown]
  - Cholecystitis chronic [None]
